FAERS Safety Report 6269318-4 (Version None)
Quarter: 2009Q3

REPORT INFORMATION
  Report Type: 
  Country: None (occurrence: None)
  Receive Date: 20090715
  Receipt Date: 20090703
  Transmission Date: 20100115
  Serious: Yes (Hospitalization)
  Sender: FDA-Public Use
  Company Number: FR-SANOFI-SYNTHELABO-A01200907057

PATIENT
  Age: 61 Year
  Sex: Male

DRUGS (3)
  1. PLAVIX [Suspect]
     Indication: ACUTE CORONARY SYNDROME
     Dosage: UNK
     Route: 048
     Dates: start: 20090507
  2. KARDEGIC [Concomitant]
     Indication: DRUG USE FOR UNKNOWN INDICATION
     Dosage: UNK
     Route: 065
     Dates: start: 20090507
  3. ANGIOTENSIN CONVERTING ENZYM INHIBITOR [Concomitant]
     Indication: DRUG USE FOR UNKNOWN INDICATION
     Dosage: UNK
     Route: 065
     Dates: start: 20090507

REACTIONS (6)
  - ANAEMIA [None]
  - C-REACTIVE PROTEIN INCREASED [None]
  - HAEMATURIA [None]
  - LUNG DISORDER [None]
  - PROTEINURIA [None]
  - RENAL FAILURE [None]
